FAERS Safety Report 10308615 (Version 2)
Quarter: 2014Q3

REPORT INFORMATION
  Report Type: Spontaneous
  Country: JP (occurrence: JP)
  Receive Date: 20140716
  Receipt Date: 20140806
  Transmission Date: 20150326
  Serious: Yes (Hospitalization)
  Sender: FDA-Public Use
  Company Number: JP-GLAXOSMITHKLINE-B1013697A

PATIENT
  Age: 65 Year
  Sex: Female

DRUGS (17)
  1. VASOLAN [Concomitant]
     Active Substance: VERAPAMIL HYDROCHLORIDE
     Route: 048
     Dates: start: 20111124
  2. ZANTAC [Suspect]
     Active Substance: RANITIDINE HYDROCHLORIDE
     Indication: PROPHYLAXIS
     Dosage: 50MG PER DAY
     Route: 042
  3. EMEND [Concomitant]
     Active Substance: APREPITANT
     Indication: PREMEDICATION
     Route: 048
  4. METHYCOBAL [Concomitant]
     Active Substance: METHYLCOBALAMIN
     Route: 048
     Dates: start: 20121023
  5. DEXART [Suspect]
     Active Substance: DEXAMETHASONE SODIUM PHOSPHATE
     Indication: PROPHYLAXIS
     Dosage: 9.9MG PER DAY
     Route: 042
  6. ALOXI [Suspect]
     Active Substance: PALONOSETRON HYDROCHLORIDE
     Indication: PROPHYLAXIS
     Dosage: .75MG PER DAY
     Route: 042
  7. METILDIGOXIN [Concomitant]
     Active Substance: METILDIGOXIN
     Dosage: .1MG PER DAY
     Route: 048
     Dates: start: 20111124
  8. POLARAMINE [Concomitant]
     Active Substance: DEXCHLORPHENIRAMINE MALEATE
     Indication: PREMEDICATION
     Route: 048
  9. WARFARIN [Concomitant]
     Active Substance: WARFARIN
     Dosage: 1MG PER DAY
     Route: 048
     Dates: start: 20111124
  10. ONON [Concomitant]
     Active Substance: PRANLUKAST
     Route: 048
     Dates: start: 20111124
  11. ZANTAC [Suspect]
     Active Substance: RANITIDINE HYDROCHLORIDE
     Indication: PROPHYLAXIS
     Dosage: 50MG PER DAY
     Route: 042
     Dates: start: 20140709, end: 20140709
  12. ALOXI [Suspect]
     Active Substance: PALONOSETRON HYDROCHLORIDE
     Indication: PROPHYLAXIS
     Dosage: .75MG PER DAY
     Route: 042
     Dates: start: 20140709, end: 20140709
  13. DEXART [Suspect]
     Active Substance: DEXAMETHASONE SODIUM PHOSPHATE
     Indication: PROPHYLAXIS
     Dosage: 9.9MG PER DAY
     Route: 042
     Dates: start: 20140709, end: 20140709
  14. MAGMITT [Concomitant]
     Active Substance: MAGNESIUM OXIDE
     Route: 048
     Dates: start: 20111124
  15. SEFTAC [Concomitant]
     Active Substance: TEPRENONE
     Route: 048
     Dates: start: 20120524
  16. PACLITAXEL. [Concomitant]
     Active Substance: PACLITAXEL
     Route: 042
  17. CARBOPLATIN. [Concomitant]
     Active Substance: CARBOPLATIN
     Route: 042

REACTIONS (6)
  - Hypersensitivity [Recovered/Resolved]
  - Anaphylactic reaction [Recovered/Resolved]
  - Dyspnoea [Recovered/Resolved]
  - PO2 decreased [Recovered/Resolved]
  - Blood pressure decreased [Recovered/Resolved]
  - Generalised erythema [Recovered/Resolved]

NARRATIVE: CASE EVENT DATE: 20140709
